FAERS Safety Report 10007194 (Version 2)
Quarter: 2014Q3

REPORT INFORMATION
  Report Type: Spontaneous
  Country: US (occurrence: US)
  Receive Date: 20140313
  Receipt Date: 20140821
  Transmission Date: 20150326
  Serious: Yes (Other)
  Sender: FDA-Public Use
  Company Number: US-GILEAD-2014-0096641

PATIENT
  Age: 79 Year
  Sex: Female

DRUGS (2)
  1. LETAIRIS [Suspect]
     Active Substance: AMBRISENTAN
     Indication: PULMONARY HYPERTENSION
     Dosage: 5 MG, QD
     Route: 048
     Dates: start: 20130729
  2. LETAIRIS [Suspect]
     Active Substance: AMBRISENTAN
     Indication: CARDIAC VALVE DISEASE

REACTIONS (3)
  - Epistaxis [Unknown]
  - Sneezing [Unknown]
  - Atrial fibrillation [Unknown]
